FAERS Safety Report 21160783 (Version 1)
Quarter: 2022Q3

REPORT INFORMATION
  Report Type: Spontaneous
  Country: US (occurrence: US)
  Receive Date: 20220802
  Receipt Date: 20220802
  Transmission Date: 20221026
  Serious: No
  Sender: FDA-Public Use
  Company Number: US-PUMA BIOTECHNOLOGY, LTD.-2022-PUM-US001003

PATIENT

DRUGS (1)
  1. NERLYNX [Suspect]
     Active Substance: NERATINIB
     Indication: HER2 positive breast cancer
     Dosage: 80 MG, DAILY
     Route: 048
     Dates: start: 20220609

REACTIONS (2)
  - Diarrhoea [Unknown]
  - Underdose [Unknown]

NARRATIVE: CASE EVENT DATE: 20220612
